FAERS Safety Report 4597547-4 (Version None)
Quarter: 2005Q1

REPORT INFORMATION
  Report Type: 
  Country: None (occurrence: None)
  Receive Date: 20050303
  Receipt Date: 20050225
  Transmission Date: 20050727
  Serious: Yes (Hospitalization, Other)
  Sender: FDA-Public Use
  Company Number: PHBS2005IT02962

PATIENT
  Age: 33 Year
  Sex: Female

DRUGS (7)
  1. PREDNISONE [Suspect]
     Dosage: 20 MG/DAY
  2. CYCLOSPORINE [Suspect]
     Indication: LIVER TRANSPLANT
     Dosage: 675 MG/DAY
  3. CYCLOSPORINE [Suspect]
     Dosage: 200 MG/DAY
     Route: 065
  4. CYCLOSPORINE [Suspect]
     Dosage: 175 MG/DAY
     Route: 065
  5. CYCLOSPORINE [Suspect]
     Dosage: 125 MG/DAY
  6. LAMIVUDINE [Concomitant]
     Indication: HEPATITIS B
     Dosage: 100 MG/DAY
  7. AZATHIOPRINE [Suspect]
     Dosage: 50 MG/DAY

REACTIONS (15)
  - ANTI-HBC IGG ANTIBODY POSITIVE [None]
  - ANTI-HBC IGM ANTIBODY POSITIVE [None]
  - ANTI-HBE ANTIBODY POSITIVE [None]
  - BLOOD CREATININE INCREASED [None]
  - BLOOD UREA INCREASED [None]
  - CAESAREAN SECTION [None]
  - CHOLESTASIS [None]
  - DRUG EXPOSURE DURING PREGNANCY [None]
  - HEPATITIS B [None]
  - HEPATITIS B ANTIBODY POSITIVE [None]
  - HEPATITIS B DNA ASSAY [None]
  - NORMAL NEWBORN [None]
  - PRURITUS [None]
  - TRANSAMINASES INCREASED [None]
  - VIRAL HEPATITIS CARRIER [None]
